FAERS Safety Report 8484760-9 (Version None)
Quarter: 2012Q3

REPORT INFORMATION
  Report Type: 
  Country: None (occurrence: None)
  Receive Date: 20120703
  Receipt Date: 20120625
  Transmission Date: 20120928
  Serious: Yes (Death)
  Sender: FDA-Public Use
  Company Number: JP-BAYER-2012-060699

PATIENT
  Age: 67 Year
  Sex: Male

DRUGS (3)
  1. CILOSTAZOL [Concomitant]
     Indication: ANTIPLATELET THERAPY
     Route: 048
  2. ASPIRIN [Suspect]
     Indication: ANTIPLATELET THERAPY
     Route: 048
  3. CLOPIDOGREL BISULFATE [Suspect]
     Indication: ANTIPLATELET THERAPY
     Dosage: UNK
     Route: 048

REACTIONS (1)
  - CEREBRAL HAEMORRHAGE [None]
